FAERS Safety Report 6096793-0 (Version None)
Quarter: 2009Q1

REPORT INFORMATION
  Report Type: 
  Country: None (occurrence: None)
  Receive Date: 20090225
  Receipt Date: 20090213
  Transmission Date: 20090719
  Serious: Yes (Death, Other)
  Sender: FDA-Public Use
  Company Number: OMPQ-NO-0902S-0107

PATIENT
  Age: 16 Year
  Sex: Male

DRUGS (3)
  1. OMNIPAQUE 300 [Suspect]
     Indication: THROMBOANGIITIS OBLITERANS
     Dosage: 150 ML, SINGLE DOSE, I.A.
     Dates: start: 20090212, end: 20090212
  2. PRANLUKAST (ONON) [Concomitant]
  3. PREDNISOLONE (PREDONINE) [Concomitant]

REACTIONS (10)
  - CARDIAC ARREST [None]
  - DEPRESSED LEVEL OF CONSCIOUSNESS [None]
  - DYSPNOEA [None]
  - EYE OEDEMA [None]
  - HEADACHE [None]
  - HYPERVENTILATION [None]
  - INJECTION SITE HAEMORRHAGE [None]
  - MUSCLE SPASMS [None]
  - OCULAR HYPERAEMIA [None]
  - RASH [None]
